FAERS Safety Report 8420423-3 (Version None)
Quarter: 2012Q2

REPORT INFORMATION
  Report Type: 
  Country: None (occurrence: None)
  Receive Date: 20120607
  Receipt Date: 20120529
  Transmission Date: 20120825
  Serious: Yes (Hospitalization, Other)
  Sender: FDA-Public Use
  Company Number: US-ABBOTT-12P-163-0940055-00

PATIENT
  Sex: Female
  Weight: 73.094 kg

DRUGS (2)
  1. LUPRON DEPOT [Suspect]
     Dates: start: 20120527
  2. LUPRON DEPOT [Suspect]
     Indication: UTERINE LEIOMYOMA
     Dates: start: 20050501, end: 20051001

REACTIONS (12)
  - PRURITUS [None]
  - FEELING COLD [None]
  - PAIN IN EXTREMITY [None]
  - FATIGUE [None]
  - OEDEMA PERIPHERAL [None]
  - INSOMNIA [None]
  - ANAEMIA [None]
  - FLUID RETENTION [None]
  - FORMICATION [None]
  - THROMBOSIS [None]
  - CHEST PAIN [None]
  - MALAISE [None]
